FAERS Safety Report 4864975-9 (Version None)
Quarter: 2005Q4

REPORT INFORMATION
  Report Type: 
  Country: None (occurrence: None)
  Receive Date: 20051223
  Receipt Date: 20051219
  Transmission Date: 20060501
  Serious: Yes (Hospitalization, Other)
  Sender: FDA-Public Use
  Company Number: PHEH2005US13605

PATIENT
  Sex: Female

DRUGS (1)
  1. METHERGINE [Suspect]
     Route: 064
     Dates: start: 20030129

REACTIONS (13)
  - APGAR SCORE LOW [None]
  - CAESAREAN SECTION [None]
  - CEREBRAL HAEMORRHAGE NEONATAL [None]
  - CEREBRAL ISCHAEMIA [None]
  - COMPLICATIONS OF MATERNAL EXPOSURE TO THERAPEUTIC DRUGS [None]
  - COORDINATION ABNORMAL [None]
  - CYCLIC VOMITING SYNDROME [None]
  - EYE MOVEMENT DISORDER [None]
  - FOETAL ACIDOSIS [None]
  - FOETAL HEART RATE DECREASED [None]
  - MEDICATION ERROR [None]
  - SKULL FRACTURE [None]
  - TRAUMATIC BRAIN INJURY [None]
